FAERS Safety Report 7869598-5 (Version None)
Quarter: 2011Q4

REPORT INFORMATION
  Report Type: 
  Country: None (occurrence: None)
  Receive Date: 20111028
  Receipt Date: 20110105
  Transmission Date: 20120403
  Serious: No
  Sender: FDA-Public Use
  Company Number: US-AMGEN-USASP2011000788

PATIENT
  Age: 56 Year
  Sex: Female

DRUGS (2)
  1. ENBREL [Suspect]
     Indication: PSORIASIS
  2. ENBREL [Suspect]
     Indication: PSORIATIC ARTHROPATHY
     Dosage: 50 MG, QWK
     Dates: start: 20101214

REACTIONS (7)
  - EAR INFECTION [None]
  - INJECTION SITE PRURITUS [None]
  - INJECTION SITE INDURATION [None]
  - MOBILITY DECREASED [None]
  - INJECTION SITE ERYTHEMA [None]
  - JOINT STIFFNESS [None]
  - INJECTION SITE PAIN [None]
